FAERS Safety Report 8574933 (Version 2)
Quarter: 2012Q4

REPORT INFORMATION
  Report Type: 
  Country: US (occurrence: US)
  Receive Date: 20120523
  Receipt Date: 20120914
  Transmission Date: 20130627
  Serious: No
  Sender: FDA-Public Use
  Company Number: US-PFIZER INC-2012122375

PATIENT
  Sex: Female

DRUGS (2)
  1. LYRICA [Suspect]
     Indication: FIBROMYALGIA
     Dosage: UNK
     Dates: end: 2012
  2. LYRICA [Suspect]
     Dosage: UNK
     Dates: start: 2012

REACTIONS (4)
  - Insomnia [Unknown]
  - Stress [Unknown]
  - Feeling abnormal [Unknown]
  - Pain [Unknown]
